FAERS Safety Report 15798115 (Version 1)
Quarter: 2019Q1

REPORT INFORMATION
  Report Type: Spontaneous
  Country: CN (occurrence: CN)
  Receive Date: 20190108
  Receipt Date: 20190108
  Transmission Date: 20190417
  Serious: Yes (Hospitalization)
  Sender: FDA-Public Use
  Company Number: CN-ASTRAZENECA-2019SE01969

PATIENT
  Sex: Female
  Weight: 50 kg

DRUGS (3)
  1. SAXAGLIPTIN [Suspect]
     Active Substance: SAXAGLIPTIN
     Indication: HYPERGLYCAEMIA
     Route: 048
     Dates: start: 20180720, end: 20181008
  2. REPAGLINIDE. [Suspect]
     Active Substance: REPAGLINIDE
     Indication: HYPERGLYCAEMIA
     Route: 048
     Dates: start: 20180720, end: 20181008
  3. ACARBOSE. [Suspect]
     Active Substance: ACARBOSE
     Indication: HYPERGLYCAEMIA
     Route: 048
     Dates: start: 20180720, end: 20181108

REACTIONS (2)
  - Hypoaesthesia [Recovered/Resolved]
  - Hypoglycaemia [Recovered/Resolved]
